FAERS Safety Report 7559855-4 (Version None)
Quarter: 2011Q2

REPORT INFORMATION
  Report Type: 
  Country: None (occurrence: None)
  Receive Date: 20110621
  Receipt Date: 20110617
  Transmission Date: 20111010
  Serious: Yes (Other)
  Sender: FDA-Public Use
  Company Number: DE-PFIZER INC-2011133727

PATIENT
  Age: 87 Year
  Sex: Male

DRUGS (1)
  1. NORVASC [Suspect]
     Indication: BLOOD PRESSURE INCREASED
     Dosage: 10 MG, 1X/DAY IN THE MORNING
     Route: 048

REACTIONS (1)
  - BLOOD PRESSURE INCREASED [None]
